FAERS Safety Report 6024846-1 (Version None)
Quarter: 2008Q4

REPORT INFORMATION
  Report Type: 
  Country: None (occurrence: None)
  Receive Date: 20081229
  Receipt Date: 20081216
  Transmission Date: 20090506
  Serious: Yes (Other)
  Sender: FDA-Public Use
  Company Number: JPI-P-004795

PATIENT
  Age: 34 Year
  Sex: Female
  Weight: 55 kg

DRUGS (24)
  1. LUVOX CR [Suspect]
     Indication: SOCIAL PHOBIA
     Dosage: SEE IMAGE
     Route: 048
     Dates: start: 20061106, end: 20061119
  2. LUVOX CR [Suspect]
     Indication: SOCIAL PHOBIA
     Dosage: SEE IMAGE
     Route: 048
     Dates: start: 20061120, end: 20061204
  3. LUVOX CR [Suspect]
     Indication: SOCIAL PHOBIA
     Dosage: SEE IMAGE
     Route: 048
     Dates: start: 20061205, end: 20070110
  4. LUVOX CR [Suspect]
     Indication: SOCIAL PHOBIA
     Dosage: SEE IMAGE
     Route: 048
     Dates: start: 20070111, end: 20070311
  5. LUVOX CR [Suspect]
     Indication: SOCIAL PHOBIA
     Dosage: SEE IMAGE
     Route: 048
     Dates: start: 20070312, end: 20070402
  6. LUVOX CR [Suspect]
     Indication: SOCIAL PHOBIA
     Dosage: SEE IMAGE
     Route: 048
     Dates: start: 20070403, end: 20070416
  7. LUVOX CR [Suspect]
     Indication: SOCIAL PHOBIA
     Dosage: SEE IMAGE
     Route: 048
     Dates: start: 20070417, end: 20071015
  8. LUVOX CR [Suspect]
     Indication: SOCIAL PHOBIA
     Dosage: SEE IMAGE
     Route: 048
     Dates: start: 20071016, end: 20071215
  9. LUVOX CR [Suspect]
     Indication: SOCIAL PHOBIA
     Dosage: SEE IMAGE
     Route: 048
     Dates: start: 20071225
  10. MILNACIPRAN HYDROCHLORIDE [Suspect]
     Indication: DEPRESSION
     Dosage: 150 MG (150 MG, 1 IN 1 D), ORAL; 100 MG (100 MG, 1 IN 1 D), ORAL
     Route: 048
     Dates: end: 20061119
  11. MILNACIPRAN HYDROCHLORIDE [Suspect]
     Indication: DEPRESSION
     Dosage: 150 MG (150 MG, 1 IN 1 D), ORAL; 100 MG (100 MG, 1 IN 1 D), ORAL
     Route: 048
     Dates: start: 20061120, end: 20061224
  12. DIAZEPAM [Concomitant]
  13. EPINASTINE HYDROCHLORIDE [Concomitant]
  14. ETIZOLAM [Concomitant]
  15. SENNA LEAF [Concomitant]
  16. ESTAZOLAM [Concomitant]
  17. CLONAZEPAM [Concomitant]
  18. ATENOLOL [Concomitant]
  19. MAGNESIUM OXIDE [Concomitant]
  20. BIPERIDEN HYDROCHLORIDE TAB [Concomitant]
  21. METOCLOPRAMIDE [Concomitant]
  22. QUETIAPINE FUMARATE [Concomitant]
  23. LEVOMEPROMAZINE MALEATE [Concomitant]
  24. VEGETAMIN-B [Concomitant]

REACTIONS (12)
  - BLEPHAROSPASM [None]
  - BLOOD CREATINE PHOSPHOKINASE INCREASED [None]
  - DEPRESSION [None]
  - DIZZINESS [None]
  - HEPATIC STEATOSIS [None]
  - NAUSEA [None]
  - PALPITATIONS [None]
  - PYREXIA [None]
  - TINNITUS [None]
  - TREMOR [None]
  - WEIGHT INCREASED [None]
  - WITHDRAWAL SYNDROME [None]
